FAERS Safety Report 4609633-0 (Version None)
Quarter: 2005Q1

REPORT INFORMATION
  Report Type: 
  Country: None (occurrence: None)
  Receive Date: 20050307
  Receipt Date: 20041013
  Transmission Date: 20050727
  Serious: Yes (Other)
  Sender: FDA-Public Use
  Company Number: 200510217BBE

PATIENT
  Sex: Male

DRUGS (9)
  1. KONYNE [Suspect]
     Indication: FACTOR IX DEFICIENCY
     Dates: start: 19700101, end: 19810101
  2. PROFILNINE [Suspect]
     Dates: start: 19810101, end: 19900101
  3. FACTOR IX COMPLEX [Suspect]
     Dates: end: 19900101
  4. WHOLE BLOOD [Suspect]
     Dates: start: 19580101
  5. WHOLE BLOOD [Suspect]
     Dates: start: 19860101
  6. WHOLE BLOOD [Suspect]
     Dates: start: 19900801
  7. PLASMA [Suspect]
     Dates: start: 19550101
  8. PLASMA [Suspect]
     Dates: start: 19710101
  9. PLASMA [Suspect]
     Dates: start: 19720101

REACTIONS (1)
  - HEPATITIS C VIRUS [None]
